FAERS Safety Report 7822173-0 (Version None)
Quarter: 2011Q4

REPORT INFORMATION
  Report Type: 
  Country: None (occurrence: None)
  Receive Date: 20111018
  Receipt Date: 20110314
  Transmission Date: 20120403
  Serious: No
  Sender: FDA-Public Use
  Company Number: US-ASTRAZENECA-2011SE08960

PATIENT
  Age: 63 Year
  Sex: Male

DRUGS (1)
  1. SYMBICORT [Suspect]
     Dosage: 160/4.5 UG TWO PUFFS BID
     Route: 055

REACTIONS (5)
  - DYSPNOEA [None]
  - NAUSEA [None]
  - FEELING JITTERY [None]
  - ABDOMINAL DISCOMFORT [None]
  - DRUG DOSE OMISSION [None]
